FAERS Safety Report 7108142-7 (Version None)
Quarter: 2010Q4

REPORT INFORMATION
  Report Type: 
  Country: None (occurrence: None)
  Receive Date: 20101115
  Receipt Date: 20101115
  Transmission Date: 20110411
  Serious: Yes (Other)
  Sender: FDA-Public Use
  Company Number: None

PATIENT
  Age: 57 Year
  Sex: Female
  Weight: 45.3597 kg

DRUGS (4)
  1. PROPOFOL [Suspect]
     Indication: ENDOSCOPY UPPER GASTROINTESTINAL TRACT
     Dosage: NOT ADMINISTERED AT THIS CLINIC BETWEEN 10/24-11/1 (ONE TIME USE)
  2. BHRT-TROCHE [Concomitant]
  3. MULTI-VITAMIN/MINERAL [Concomitant]
  4. VIT D3 [Concomitant]

REACTIONS (18)
  - ABDOMINAL PAIN UPPER [None]
  - ALANINE AMINOTRANSFERASE INCREASED [None]
  - ALOPECIA [None]
  - ASPARTATE AMINOTRANSFERASE INCREASED [None]
  - BLOOD ALKALINE PHOSPHATASE [None]
  - CHROMATURIA [None]
  - CONDITION AGGRAVATED [None]
  - DRY SKIN [None]
  - HIGH DENSITY LIPOPROTEIN DECREASED [None]
  - HYPERTRIGLYCERIDAEMIA [None]
  - JAUNDICE [None]
  - LOW DENSITY LIPOPROTEIN INCREASED [None]
  - NAUSEA [None]
  - PANCYTOPENIA [None]
  - PHLEBITIS [None]
  - PRURITUS [None]
  - RASH [None]
  - VULVOVAGINAL MYCOTIC INFECTION [None]
